FAERS Safety Report 8597280 (Version 2)
Quarter: 2012Q4

REPORT INFORMATION
  Report Type: 
  Country: IT (occurrence: IT)
  Receive Date: 20120605
  Receipt Date: 20121113
  Transmission Date: 20130627
  Serious: Yes (Hospitalization)
  Sender: FDA-Public Use
  Company Number: IT-PFIZER INC-2012131193

PATIENT
  Age: 50 Year
  Sex: Female

DRUGS (1)
  1. XANAX [Suspect]
     Dosage: 30 ml, total dose
     Route: 048
     Dates: start: 20120515, end: 20120515

REACTIONS (2)
  - Intentional overdose [Unknown]
  - Sopor [Recovered/Resolved]
